FAERS Safety Report 8509830-8 (Version None)
Quarter: 2012Q3

REPORT INFORMATION
  Report Type: 
  Country: None (occurrence: None)
  Receive Date: 20120713
  Receipt Date: 20120709
  Transmission Date: 20120928
  Serious: Yes (Death, Hospitalization)
  Sender: FDA-Public Use
  Company Number: IT-ASTRAZENECA-2012SE29921

PATIENT
  Age: 73 Year
  Sex: Male
  Weight: 60 kg

DRUGS (11)
  1. ENOXAPARIN SODIUM [Suspect]
     Indication: THROMBOSIS PROPHYLAXIS
     Route: 058
     Dates: start: 20120409, end: 20120416
  2. ASPIRIN [Suspect]
     Indication: THROMBOSIS PROPHYLAXIS
     Route: 048
     Dates: start: 20120411, end: 20120430
  3. LASIX [Concomitant]
     Dosage: 20 MG/2 ML INJECTAL SOLUTION
     Route: 042
     Dates: start: 20120409, end: 20120510
  4. BRILINTA [Suspect]
     Indication: THROMBOSIS PROPHYLAXIS
     Route: 048
     Dates: start: 20120409, end: 20120416
  5. CEFAZOLIN [Concomitant]
     Indication: URINARY TRACT INFECTION
     Route: 048
     Dates: start: 20120409
  6. RAMIPRIL [Concomitant]
     Route: 048
     Dates: start: 20120413, end: 20120415
  7. ACETAMINOPHEN [Concomitant]
     Indication: ANTIPYRESIS
     Dosage: 10 MG/ML SOLUTION FOR INFUSION, AS REQUIRED
     Route: 041
  8. OMEPRAZOLE [Concomitant]
     Indication: PROPHYLAXIS AGAINST GASTROINTESTINAL ULCER
     Route: 042
  9. ENOXAPARIN SODIUM [Suspect]
     Route: 058
     Dates: start: 20120409, end: 20120416
  10. MADOPAR [Concomitant]
     Indication: PARKINSONISM
     Dosage: 200 MG + 50 MG TABLET, 1 DOSAGE FORM AT UNKNOWN FREQUENCY
     Route: 048
  11. POTASSIUM CANRENOATE [Concomitant]
     Dates: start: 20120412

REACTIONS (4)
  - HAEMATURIA [None]
  - SEPTIC SHOCK [None]
  - ANAEMIA [None]
  - PHARYNGEAL HAEMORRHAGE [None]
